FAERS Safety Report 8622903-4 (Version None)
Quarter: 2012Q3

REPORT INFORMATION
  Report Type: 
  Country: None (occurrence: None)
  Receive Date: 20120827
  Receipt Date: 20120821
  Transmission Date: 20120928
  Serious: Yes (Hospitalization)
  Sender: FDA-Public Use
  Company Number: PHHY2012JP073093

PATIENT
  Age: 78 Year
  Sex: Male

DRUGS (4)
  1. DICLOFENAC SODIUM [Suspect]
     Indication: HERPES ZOSTER
     Dosage: 25 MG, TID
     Route: 048
     Dates: start: 20120809, end: 20120810
  2. LYRICA [Suspect]
     Indication: HERPES ZOSTER
     Dosage: 150 MG PER DAY
     Route: 048
     Dates: start: 20120809, end: 20120810
  3. FAMVIR [Suspect]
     Indication: HERPES ZOSTER
     Dosage: 500 MG, TID
     Route: 048
     Dates: start: 20120809, end: 20120810
  4. VITAMIN B-12 [Concomitant]
     Dosage: 2 DF,
     Route: 048
     Dates: start: 20120809, end: 20120810

REACTIONS (4)
  - HAEMATOCRIT DECREASED [None]
  - HAEMOGLOBIN DECREASED [None]
  - RENAL FAILURE ACUTE [None]
  - LOSS OF CONSCIOUSNESS [None]
